FAERS Safety Report 9750872 (Version 3)
Quarter: 2014Q2

REPORT INFORMATION
  Report Type: Spontaneous
  Country: CA (occurrence: CA)
  Receive Date: 20131212
  Receipt Date: 20140505
  Transmission Date: 20141212
  Serious: Yes (Other)
  Sender: FDA-Public Use
  Company Number: CA-MERCK-1310CAN009400

PATIENT
  Age: 66 Year
  Sex: Male
  Weight: 75 kg

DRUGS (12)
  1. INVANZ [Suspect]
     Dosage: 500 MG, QD
     Route: 042
     Dates: start: 20120921, end: 20120924
  2. ADALAT XL [Concomitant]
     Route: 065
  3. LASIX (FUROSEMIDE) [Concomitant]
     Route: 065
  4. EFFEXOR [Concomitant]
     Route: 065
  5. PREVACID [Concomitant]
     Route: 065
  6. ASPIRIN [Concomitant]
     Route: 065
  7. AVODART [Concomitant]
     Route: 065
  8. RIVOTRIL [Concomitant]
     Route: 065
  9. QUININE [Concomitant]
     Route: 065
  10. RENVELA [Concomitant]
     Route: 065
  11. ALLOPURINOL [Concomitant]
     Route: 065
  12. DIAMINE (RANITIDINE HYDROCHLORIDE) [Concomitant]
     Route: 065

REACTIONS (8)
  - Confusional state [Recovered/Resolved]
  - Balance disorder [Recovered/Resolved]
  - Slow response to stimuli [Recovered/Resolved with Sequelae]
  - Dizziness [Unknown]
  - Amnesia [Unknown]
  - Fall [Unknown]
  - Neurological examination abnormal [Not Recovered/Not Resolved]
  - Delirium [Recovering/Resolving]
